FAERS Safety Report 6342316-8 (Version None)
Quarter: 2009Q3

REPORT INFORMATION
  Report Type: 
  Country: None (occurrence: None)
  Receive Date: 20090907
  Receipt Date: 20070525
  Transmission Date: 20100115
  Serious: Yes (Disabling, Other)
  Sender: FDA-Public Use
  Company Number: US-ASTRAZENECA-2006UW11745

PATIENT
  Age: 15111 Day
  Sex: Female
  Weight: 85.4 kg

DRUGS (20)
  1. SEROQUEL [Suspect]
     Indication: DEPRESSION
     Dosage: 50 - 600 MG AT NIGHT, AS REQUIRED
     Route: 048
     Dates: start: 20030731
  2. SEROQUEL [Suspect]
     Indication: INSOMNIA
     Dosage: 50 - 600 MG AT NIGHT, AS REQUIRED
     Route: 048
     Dates: start: 20030731
  3. SEROQUEL [Suspect]
     Indication: AFFECTIVE DISORDER
     Dosage: 50 - 600 MG AT NIGHT, AS REQUIRED
     Route: 048
     Dates: start: 20030731
  4. SEROQUEL [Suspect]
     Indication: PSYCHOTIC DISORDER
     Dosage: 50 - 600 MG AT NIGHT, AS REQUIRED
     Route: 048
     Dates: start: 20030731
  5. SEROQUEL [Suspect]
     Route: 048
  6. SEROQUEL [Suspect]
     Route: 048
  7. SEROQUEL [Suspect]
     Route: 048
  8. SEROQUEL [Suspect]
     Route: 048
  9. RISPERDAL [Suspect]
     Indication: HALLUCINATION, AUDITORY
     Dosage: 0.5 - 1 MG AT NIGHT
     Dates: start: 20000302
  10. FLEXERIL [Concomitant]
  11. ZANTAC [Concomitant]
  12. EFFEXOR XR [Concomitant]
     Indication: DEPRESSION
     Dosage: 150 - 225 MG DAILY
     Route: 048
     Dates: start: 20000302
  13. NEURONTIN [Concomitant]
     Dates: start: 20010514
  14. CYMBALTA [Concomitant]
     Indication: DEPRESSION
     Dosage: 60 - 120 MG DAILY
     Route: 048
     Dates: start: 20050812
  15. REMERON [Concomitant]
     Route: 048
     Dates: start: 20000302
  16. SKELAXIN [Concomitant]
     Dates: start: 20000219
  17. OXYCONTIN [Concomitant]
     Indication: FIBROMYALGIA
     Dosage: 40 - 80 MG DAILY
     Dates: start: 20030722
  18. ZYPREXA [Concomitant]
     Dates: start: 20020925
  19. AMITRIPTYLINE [Concomitant]
     Indication: DEPRESSION
     Dosage: 25 - 150 MG DAILY
     Route: 048
     Dates: start: 20020925
  20. ATIVAN [Concomitant]
     Indication: INSOMNIA
     Dosage: 1.5 - 2.5 MG DAILY
     Dates: start: 20030722

REACTIONS (7)
  - DIABETES MELLITUS [None]
  - DIABETES MELLITUS INADEQUATE CONTROL [None]
  - DIABETIC AMYOTROPHY [None]
  - DIABETIC FOOT [None]
  - DIABETIC NEUROPATHY [None]
  - KETOACIDOSIS [None]
  - WEIGHT INCREASED [None]
